FAERS Safety Report 6966295-5 (Version None)
Quarter: 2010Q3

REPORT INFORMATION
  Report Type: 
  Country: None (occurrence: None)
  Receive Date: 20100903
  Receipt Date: 20100823
  Transmission Date: 20110219
  Serious: Yes (Other)
  Sender: FDA-Public Use
  Company Number: PHHY2010CA54414

PATIENT
  Sex: Female

DRUGS (3)
  1. ZOLEDRONIC [Suspect]
     Indication: OSTEOPOROSIS
     Dosage: 5 MG
     Dates: start: 20090908
  2. CARBOCAL D 400 [Concomitant]
  3. SERC [Concomitant]
     Dosage: UNK

REACTIONS (1)
  - BLADDER CANCER [None]
